FAERS Safety Report 5309196-0 (Version None)
Quarter: 2007Q2

REPORT INFORMATION
  Report Type: 
  Country: None (occurrence: None)
  Receive Date: 20070423
  Receipt Date: 20070411
  Transmission Date: 20071010
  Serious: Yes (Hospitalization)
  Sender: FDA-Public Use
  Company Number: 2007BI006625

PATIENT
  Age: 59 Year
  Sex: Female

DRUGS (7)
  1. NATALIZUMAB [Suspect]
     Indication: MULTIPLE SCLEROSIS
     Dosage: SEE IMAGE
     Route: 042
     Dates: start: 20060920, end: 20061001
  2. NATALIZUMAB [Suspect]
     Indication: MULTIPLE SCLEROSIS
     Dosage: SEE IMAGE
     Route: 042
     Dates: start: 20061107, end: 20070326
  3. COUMADIN [Concomitant]
  4. VYTORIN [Concomitant]
  5. FOSAMAX [Concomitant]
  6. CALCIUM CHLORIDE [Concomitant]
  7. VITAMIN CAP [Concomitant]

REACTIONS (10)
  - ABASIA [None]
  - ASTHENIA [None]
  - BACK PAIN [None]
  - COORDINATION ABNORMAL [None]
  - DEEP VEIN THROMBOSIS [None]
  - DRUG INEFFECTIVE [None]
  - INTERNATIONAL NORMALISED RATIO ABNORMAL [None]
  - MULTIPLE SCLEROSIS [None]
  - OPPORTUNISTIC INFECTION [None]
  - PARAESTHESIA [None]
